FAERS Safety Report 13913434 (Version 1)
Quarter: 2017Q3

REPORT INFORMATION
  Report Type: Spontaneous
  Country: US (occurrence: US)
  Receive Date: 20170828
  Receipt Date: 20170828
  Transmission Date: 20171127
  Serious: Yes (Other)
  Sender: FDA-Public Use
  Company Number: US-ROCHE-1131750

PATIENT
  Sex: Male

DRUGS (4)
  1. PREMPRO [Concomitant]
     Active Substance: ESTROGENS, CONJUGATED\MEDROXYPROGESTERONE ACETATE
  2. PROTONIX [Concomitant]
     Active Substance: PANTOPRAZOLE SODIUM
  3. NUTROPIN AQ [Suspect]
     Active Substance: SOMATROPIN
     Indication: HYPOPITUITARISM
     Route: 065
  4. TESTOSTERONE CREAM [Concomitant]
     Active Substance: TESTOSTERONE

REACTIONS (14)
  - Macule [Unknown]
  - Dyspnoea [Unknown]
  - Lipase increased [Unknown]
  - Dry skin [Unknown]
  - Pancreatitis chronic [Unknown]
  - Pruritus [Unknown]
  - Ephelides [Unknown]
  - Carpal tunnel syndrome [Unknown]
  - Amylase increased [Unknown]
  - Lymphadenopathy [Unknown]
  - Weight increased [Unknown]
  - Dysphonia [Unknown]
  - Arthralgia [Unknown]
  - Drug ineffective [Unknown]
